FAERS Safety Report 6643673-5 (Version None)
Quarter: 2010Q1

REPORT INFORMATION
  Report Type: 
  Country: None (occurrence: None)
  Receive Date: 20100321
  Receipt Date: 20100310
  Transmission Date: 20100710
  Serious: Yes (Hospitalization, Other)
  Sender: FDA-Public Use
  Company Number: JP-BRISTOL-MYERS SQUIBB COMPANY-15015050

PATIENT
  Age: 64 Year
  Sex: Male

DRUGS (4)
  1. TAXOL [Suspect]
     Indication: GASTRIC CANCER STAGE IV
     Route: 041
  2. CISPLATIN [Suspect]
     Indication: GASTRIC CANCER STAGE IV
     Dosage: 5 COURSE. 2ND LINE TREATMENT.
  3. IRINOTECAN HCL [Suspect]
     Indication: GASTRIC CANCER STAGE IV
     Dosage: 5 COURSE. 2ND LINE TREATMENT.
  4. DOCETAXEL [Suspect]
     Indication: GASTRIC CANCER STAGE IV
     Dosage: 3RD LINE TREATMENT.

REACTIONS (2)
  - ANAPHYLACTIC SHOCK [None]
  - MALIGNANT NEOPLASM PROGRESSION [None]
